FAERS Safety Report 24581154 (Version 3)
Quarter: 2025Q1

REPORT INFORMATION
  Report Type: Spontaneous
  Country: AR (occurrence: AR)
  Receive Date: 20241105
  Receipt Date: 20250107
  Transmission Date: 20250409
  Serious: Yes (Hospitalization, Other)
  Sender: BIOMARIN
  Company Number: AR-BIOMARINAP-AR-2024-160686

PATIENT

DRUGS (1)
  1. NAGLAZYME [Suspect]
     Active Substance: GALSULFASE
     Indication: Mucopolysaccharidosis VI
     Dosage: UNK, QW
     Route: 042
     Dates: start: 20171101

REACTIONS (10)
  - Upper airway obstruction [Recovering/Resolving]
  - Respiratory tract inflammation [Recovered/Resolved]
  - Cerebrospinal fluid retention [Recovering/Resolving]
  - Apnoea [Recovering/Resolving]
  - Respiratory disorder [Recovering/Resolving]
  - Salivary hypersecretion [Recovering/Resolving]
  - Retching [Recovering/Resolving]
  - Dyspnoea [Recovering/Resolving]
  - Procedural hypertension [Recovering/Resolving]
  - Heart rate increased [Recovering/Resolving]

NARRATIVE: CASE EVENT DATE: 20240904
